FAERS Safety Report 17698278 (Version 1)
Quarter: 2020Q2

REPORT INFORMATION
  Report Type: Spontaneous
  Country: US (occurrence: US)
  Receive Date: 20200423
  Receipt Date: 20200423
  Transmission Date: 20200714
  Serious: No
  Sender: FDA-Public Use
  Company Number: US-PFIZER INC-2020159001

PATIENT
  Age: 65 Year
  Sex: Female
  Weight: 56.7 kg

DRUGS (2)
  1. BOSULIF [Interacting]
     Active Substance: BOSUTINIB MONOHYDRATE
     Indication: CHRONIC MYELOID LEUKAEMIA
  2. BOSULIF [Suspect]
     Active Substance: BOSUTINIB MONOHYDRATE
     Indication: CHRONIC LYMPHOCYTIC LEUKAEMIA
     Dosage: 200 MG, 1X/DAY(2 PILLS A DAY)
     Route: 048
     Dates: start: 20200107

REACTIONS (3)
  - Food interaction [Unknown]
  - Abdominal pain upper [Unknown]
  - Nausea [Unknown]
